FAERS Safety Report 9944425 (Version 1)
Quarter: 2014Q1

REPORT INFORMATION
  Report Type: Report from Study
  Country: US (occurrence: US)
  Receive Date: 20140303
  Receipt Date: 20140303
  Transmission Date: 20141002
  Serious: No
  Sender: FDA-Public Use
  Company Number: US-ABBVIE-13P-163-1048558-00

PATIENT
  Age: 29 Year
  Sex: Female

DRUGS (6)
  1. HUMIRA [Suspect]
     Indication: CROHN^S DISEASE
     Dates: start: 20121109
  2. AZATHIOPRINE [Concomitant]
     Indication: CROHN^S DISEASE
  3. MONONESSA [Concomitant]
     Indication: CONTRACEPTION
     Dosage: DAILY
  4. PREDNISONE [Concomitant]
     Indication: CROHN^S DISEASE
     Dosage: 30MG IN THE MORNING, 20MG IN EVENING
  5. PREDNISONE [Concomitant]
     Dates: start: 20130129
  6. PREDNISONE [Concomitant]

REACTIONS (2)
  - Injection site pain [Recovering/Resolving]
  - Abdominal pain upper [Recovering/Resolving]
